FAERS Safety Report 20150542 (Version 1)
Quarter: 2021Q4

REPORT INFORMATION
  Report Type: Report from Study
  Country: BE (occurrence: BE)
  Receive Date: 20211206
  Receipt Date: 20211206
  Transmission Date: 20220303
  Serious: Yes (Other)
  Sender: FDA-Public Use
  Company Number: BE-ABBVIE-21K-013-4184960-00

PATIENT
  Age: 77 Year
  Sex: Female
  Weight: 65 kg

DRUGS (6)
  1. CARBIDOPA\LEVODOPA [Suspect]
     Active Substance: CARBIDOPA\LEVODOPA
     Indication: Parkinson^s disease
     Route: 050
     Dates: start: 20211115, end: 20211118
  2. CARBIDOPA\LEVODOPA [Suspect]
     Active Substance: CARBIDOPA\LEVODOPA
     Dosage: MD 5.0 ML; CD 2.4 ML/HR DURING 16 HOURS; ED 1.0 ML
     Route: 050
     Dates: start: 20211118, end: 20211125
  3. CARBIDOPA\LEVODOPA [Suspect]
     Active Substance: CARBIDOPA\LEVODOPA
     Dosage: MD 5.5 ML; CD 2.6 ML/HR DURING 16 HOURS; ED 1.0 ML
     Route: 050
     Dates: start: 20211125, end: 20211125
  4. CARBIDOPA\LEVODOPA [Suspect]
     Active Substance: CARBIDOPA\LEVODOPA
     Dosage: MD 5.5 ML; CD 2.8 ML/HR DURING 16 HOURS; ED 1.5 ML
     Route: 050
     Dates: start: 20211125, end: 20211201
  5. CARBIDOPA\LEVODOPA [Suspect]
     Active Substance: CARBIDOPA\LEVODOPA
     Dosage: MD 5.5 ML; CD 3.1 ML/HR DURING 16 HOURS; ED 1.5 ML
     Route: 050
     Dates: start: 20211201
  6. PRAMIPEXOLE [Concomitant]
     Active Substance: PRAMIPEXOLE
     Indication: Product used for unknown indication
     Dosage: 0.26 MG

REACTIONS (3)
  - Depressed level of consciousness [Unknown]
  - Bradykinesia [Unknown]
  - Muscle rigidity [Not Recovered/Not Resolved]
